FAERS Safety Report 14348734 (Version 2)
Quarter: 2018Q1

REPORT INFORMATION
  Report Type: Spontaneous
  Country: US (occurrence: US)
  Receive Date: 20180104
  Receipt Date: 20180212
  Transmission Date: 20180509
  Serious: Yes (Other)
  Sender: FDA-Public Use
  Company Number: US-ABBVIE-17K-163-2207262-00

PATIENT
  Sex: Male

DRUGS (6)
  1. MTX [Suspect]
     Active Substance: METHOTREXATE SODIUM
     Indication: RHEUMATOID ARTHRITIS
     Route: 065
     Dates: end: 201707
  2. ENBREL [Suspect]
     Active Substance: ETANERCEPT
     Indication: POLYMYALGIA RHEUMATICA
  3. XELJANZ [Concomitant]
     Active Substance: TOFACITINIB CITRATE
     Indication: PRODUCT USED FOR UNKNOWN INDICATION
     Dates: start: 201708
  4. HUMIRA [Suspect]
     Active Substance: ADALIMUMAB
     Indication: RHEUMATOID ARTHRITIS
     Route: 058
     Dates: start: 201611, end: 201707
  5. ENBREL [Suspect]
     Active Substance: ETANERCEPT
     Indication: RHEUMATOID ARTHRITIS
     Route: 058
     Dates: start: 201607, end: 20161130
  6. ADVIL [Suspect]
     Active Substance: IBUPROFEN
     Indication: PRODUCT USED FOR UNKNOWN INDICATION
     Route: 065

REACTIONS (11)
  - Drug ineffective [Unknown]
  - Fatigue [Unknown]
  - Off label use [Unknown]
  - Joint swelling [Unknown]
  - Arthralgia [Unknown]
  - Musculoskeletal stiffness [Unknown]
  - Dry eye [Unknown]
  - Tenderness [Unknown]
  - Drug ineffective [Unknown]
  - Joint stiffness [Unknown]
  - Malaise [Unknown]

NARRATIVE: CASE EVENT DATE: 2016
